FAERS Safety Report 7115649-5 (Version None)
Quarter: 2010Q4

REPORT INFORMATION
  Report Type: 
  Country: None (occurrence: None)
  Receive Date: 20101122
  Receipt Date: 20101110
  Transmission Date: 20110411
  Serious: Yes (Other)
  Sender: FDA-Public Use
  Company Number: US-JNJFOC-20101104393

PATIENT
  Sex: Female

DRUGS (3)
  1. TOPAMAX [Suspect]
     Indication: FIBROMYALGIA
     Route: 048
  2. ZANAFLEX [Concomitant]
     Indication: PAIN
     Route: 048
  3. PREVACID [Concomitant]
     Indication: GASTROOESOPHAGEAL REFLUX DISEASE
     Route: 048

REACTIONS (10)
  - CARDIAC FAILURE CONGESTIVE [None]
  - COMMUNICATION DISORDER [None]
  - HYPOTHYROIDISM [None]
  - MUSCLE SPASMS [None]
  - NEPHROLITHIASIS [None]
  - OVERDOSE [None]
  - PAIN [None]
  - TREATMENT NONCOMPLIANCE [None]
  - VISUAL IMPAIRMENT [None]
  - WEIGHT DECREASED [None]
